FAERS Safety Report 17421413 (Version 1)
Quarter: 2020Q1

REPORT INFORMATION
  Report Type: Report from Study
  Country: US (occurrence: US)
  Receive Date: 20200214
  Receipt Date: 20200214
  Transmission Date: 20200409
  Serious: Yes (Hospitalization, Other)
  Sender: FDA-Public Use
  Company Number: NVSC2020US040933

PATIENT
  Age: 5 Year
  Sex: Male

DRUGS (13)
  1. CALCIUM CARBONATE. [Concomitant]
     Active Substance: CALCIUM CARBONATE
     Indication: NUTRITIONAL SUPPLEMENTATION
     Dosage: 750 MG
     Route: 048
     Dates: start: 20171018
  2. VITAMIN D [Concomitant]
     Active Substance: VITAMIN D NOS
     Indication: NUTRITIONAL SUPPLEMENTATION
     Dosage: 400 U, QD
     Route: 048
     Dates: start: 20171018
  3. OMNICEF [Concomitant]
     Active Substance: CEFDINIR
     Indication: OTITIS MEDIA ACUTE
     Dosage: 4 ML, QD
     Route: 048
     Dates: start: 20180226, end: 20180307
  4. SODIUM CHLORIDE. [Concomitant]
     Active Substance: SODIUM CHLORIDE
     Indication: PULMONARY CONGESTION
     Dosage: 780 %, Q2H
     Route: 045
  5. SODIUM CHLORIDE. [Concomitant]
     Active Substance: SODIUM CHLORIDE
     Indication: WHEEZING
  6. MIRALAX [Concomitant]
     Active Substance: POLYETHYLENE GLYCOL 3350
     Indication: CONSTIPATION
     Dosage: 17 G, PRN
     Route: 048
     Dates: start: 20171018
  7. SODIUM CHLORIDE. [Concomitant]
     Active Substance: SODIUM CHLORIDE
     Indication: DYSPNOEA
  8. MOTRIN [Concomitant]
     Active Substance: IBUPROFEN
     Indication: PYREXIA
     Dosage: UNK
     Route: 065
  9. NUSINERSEN [Concomitant]
     Active Substance: NUSINERSEN
     Indication: SPINAL MUSCULAR ATROPHY
     Dosage: 12 MG, QD
     Route: 037
     Dates: start: 20171012
  10. ZOLGENSMA [Suspect]
     Active Substance: ONASEMNOGENE ABEPARVOVEC-XIOI
     Indication: SPINAL MUSCULAR ATROPHY
     Dosage: 2.0 X 10^14 VG/KG, SINGLE
     Route: 042
     Dates: start: 20150120
  11. MOTRIN [Concomitant]
     Active Substance: IBUPROFEN
     Indication: PAIN
  12. MULTIVITAMIN [Concomitant]
     Active Substance: VITAMINS
     Indication: NUTRITIONAL SUPPLEMENTATION
     Dosage: 1 DF, QD
     Route: 048
     Dates: start: 20171020
  13. SENOKOT [Concomitant]
     Active Substance: SENNOSIDES
     Indication: CONSTIPATION
     Dosage: 8.80 MG, QD
     Route: 048
     Dates: start: 20171208

REACTIONS (10)
  - Adenovirus infection [Unknown]
  - Respiratory distress [Not Recovered/Not Resolved]
  - Pneumonia respiratory syncytial viral [Unknown]
  - Pneumonia [Unknown]
  - Influenza [Unknown]
  - Nausea [Unknown]
  - Tonsillar hypertrophy [Unknown]
  - Hypoglycaemia [Unknown]
  - Hepatic enzyme increased [Unknown]
  - Hypophagia [Unknown]

NARRATIVE: CASE EVENT DATE: 201503
